FAERS Safety Report 4616894-0 (Version None)
Quarter: 2005Q1

REPORT INFORMATION
  Report Type: 
  Country: None (occurrence: None)
  Receive Date: 20050321
  Receipt Date: 20050307
  Transmission Date: 20050727
  Serious: Yes (Life-Threatening)
  Sender: FDA-Public Use
  Company Number: 2005041719

PATIENT
  Age: 73 Year
  Sex: Female
  Weight: 75 kg

DRUGS (4)
  1. LYRICA [Suspect]
     Indication: NEURALGIA
     Dosage: 25 MG (25 MG, 1 IN 1 D), ORAL
     Route: 048
     Dates: start: 20050105, end: 20050105
  2. IBUPROFEN [Concomitant]
  3. ACETAMINOPHEN [Concomitant]
  4. DESLORATADINE (DESLORATADINE) [Concomitant]

REACTIONS (8)
  - ANAPHYLACTIC REACTION [None]
  - DROOLING [None]
  - DYSPNOEA [None]
  - EYE SWELLING [None]
  - MALAISE [None]
  - ORAL DISCOMFORT [None]
  - SWELLING FACE [None]
  - TONGUE DISORDER [None]
